FAERS Safety Report 15952253 (Version 5)
Quarter: 2019Q3

REPORT INFORMATION
  Report Type: Spontaneous
  Country: US (occurrence: US)
  Receive Date: 20190212
  Receipt Date: 20190903
  Transmission Date: 20191004
  Serious: Yes (Other)
  Sender: FDA-Public Use
  Company Number: US-PFIZER INC-2019055892

PATIENT
  Age: 52 Year
  Sex: Female
  Weight: 97.51 kg

DRUGS (12)
  1. FLUTICASONE PROPIONATE. [Concomitant]
     Active Substance: FLUTICASONE PROPIONATE
     Dosage: UNK UNK, 2X/DAY(2 SPRAYS INTO EACH NOSTRIL)
     Route: 045
  2. ORPHENADRINE [Concomitant]
     Active Substance: ORPHENADRINE
     Dosage: 100 MG, 2X/DAY
     Route: 048
  3. CARBAMAZEPINE A [Concomitant]
     Active Substance: CARBAMAZEPINE
     Dosage: 200 MG, 2X/DAY
     Route: 048
  4. DULOXETINE. [Concomitant]
     Active Substance: DULOXETINE
     Dosage: 60 MG, DAILY
     Route: 048
  5. TAPENTADOL [Concomitant]
     Active Substance: TAPENTADOL
     Dosage: 100 MG, AS NEEDED (EVERY 6 (SIX) HOURS AS NEEDED FOR UP TO 30 DAYS)
     Route: 048
  6. GABAPENTIN. [Concomitant]
     Active Substance: GABAPENTIN
     Dosage: 600 MG, 1X/DAY
     Route: 048
  7. PHENTERMINE. [Concomitant]
     Active Substance: PHENTERMINE
     Dosage: 37.5 MG, 1X/DAY (EVERY MORNING)
     Route: 048
  8. CETIRIZINE [Concomitant]
     Active Substance: CETIRIZINE HYDROCHLORIDE
     Dosage: 10 MG, DAILY
     Route: 048
  9. VARENICLINE [Concomitant]
     Active Substance: VARENICLINE
     Dosage: 1 MG, 2X/DAY
     Route: 048
  10. CHANTIX [Suspect]
     Active Substance: VARENICLINE TARTRATE
     Indication: SMOKING CESSATION THERAPY
     Dosage: 10 MG, UNK
     Route: 048
     Dates: start: 201903
  11. THERMACARE HEATWRAPS [Concomitant]
     Active Substance: ACTIVATED CHARCOAL\IRON\SODIUM
     Dosage: UNK, AS NEEDED (1 APPLICATION BY TOPICAL (TOP)ROUTE DAILY AS NEEDED)
     Route: 061
  12. TRAZODONE [Concomitant]
     Active Substance: TRAZODONE HYDROCHLORIDE
     Dosage: 300 MG, 1X/DAY (TAKE TWO TABLETS BY MOUTH AT BEDTIME AS DIRECTED))
     Route: 048

REACTIONS (13)
  - Muscle spasms [Recovered/Resolved]
  - Anxiety [Recovered/Resolved]
  - Insomnia [Recovered/Resolved]
  - Product dispensing error [Unknown]
  - Cardiac disorder [Unknown]
  - Torticollis [Recovered/Resolved]
  - Neck pain [Recovered/Resolved]
  - Bipolar II disorder [Recovered/Resolved]
  - Thyroid mass [Recovered/Resolved]
  - Fibromyalgia [Recovered/Resolved]
  - Deafness [Recovered/Resolved]
  - Overdose [Unknown]
  - Mastoid disorder [Recovered/Resolved]

NARRATIVE: CASE EVENT DATE: 201903
